FAERS Safety Report 24148642 (Version 1)
Quarter: 2024Q3

REPORT INFORMATION
  Report Type: Spontaneous
  Country: US (occurrence: US)
  Receive Date: 20240729
  Receipt Date: 20240729
  Transmission Date: 20241017
  Serious: Yes (Hospitalization, Other)
  Sender: TEVA
  Company Number: US-TEVA-VS-3222807

PATIENT
  Age: 73 Year
  Sex: Male
  Weight: 58.97 kg

DRUGS (3)
  1. LENALIDOMIDE [Suspect]
     Active Substance: LENALIDOMIDE
     Indication: Plasma cell myeloma
     Route: 048
     Dates: start: 202406
  2. DARATUMUMAB [Concomitant]
     Active Substance: DARATUMUMAB
  3. VELCADE [Concomitant]
     Active Substance: BORTEZOMIB

REACTIONS (9)
  - Hyperthermia malignant [Unknown]
  - International normalised ratio abnormal [Unknown]
  - Laboratory test abnormal [Unknown]
  - Toxicity to various agents [Unknown]
  - Platelet count decreased [Unknown]
  - Adverse drug reaction [Unknown]
  - Liver injury [Unknown]
  - Alpha 1 foetoprotein abnormal [Unknown]
  - Aspartate aminotransferase abnormal [Unknown]

NARRATIVE: CASE EVENT DATE: 20240611
